FAERS Safety Report 5260351-8 (Version None)
Quarter: 2007Q1

REPORT INFORMATION
  Report Type: 
  Country: None (occurrence: None)
  Receive Date: 20070309
  Receipt Date: 20060725
  Transmission Date: 20070707
  Serious: No
  Sender: FDA-Public Use
  Company Number: US-GLAXOSMITHKLINE-A0613248A

PATIENT
  Age: 30 Year

DRUGS (1)
  1. NICORETTE (MINT) [Suspect]

REACTIONS (2)
  - HEART RATE INCREASED [None]
  - NAUSEA [None]
